FAERS Safety Report 5672774-3 (Version None)
Quarter: 2008Q1

REPORT INFORMATION
  Report Type: 
  Country: None (occurrence: None)
  Receive Date: 20080319
  Receipt Date: 20070412
  Transmission Date: 20080703
  Serious: No
  Sender: FDA-Public Use
  Company Number: US-KINGPHARMUSA00001-K200700470

PATIENT

DRUGS (3)
  1. ALTACE [Suspect]
     Dosage: 10 MG, QD
     Dates: start: 20060926
  2. FELODIPINE [Suspect]
     Indication: HYPERTENSION
     Dosage: 10 MG, QD
     Dates: start: 20060926
  3. CREAM [Concomitant]
     Indication: ECZEMA
     Route: 061

REACTIONS (2)
  - HYPERSENSITIVITY [None]
  - RASH [None]
